FAERS Safety Report 4922400-3 (Version None)
Quarter: 2006Q1

REPORT INFORMATION
  Report Type: 
  Country: None (occurrence: None)
  Receive Date: 20060224
  Receipt Date: 20051207
  Transmission Date: 20060701
  Serious: Yes (Hospitalization, Disabling)
  Sender: FDA-Public Use
  Company Number: US-MERCK-0512USA01320

PATIENT
  Age: 28 Year
  Sex: Male
  Weight: 114 kg

DRUGS (2)
  1. VIOXX [Suspect]
     Indication: ARTHRITIS
     Route: 048
     Dates: start: 20010101, end: 20040101
  2. ALEVE [Concomitant]
     Route: 065

REACTIONS (9)
  - ADJUSTMENT DISORDER [None]
  - ASTHMA [None]
  - CHEST PAIN [None]
  - DEPRESSION [None]
  - DERMATITIS [None]
  - DILATATION ATRIAL [None]
  - JOINT INJURY [None]
  - MYOCARDIAL INFARCTION [None]
  - VIRAL PHARYNGITIS [None]
